FAERS Safety Report 8180045-9 (Version None)
Quarter: 2012Q1

REPORT INFORMATION
  Report Type: 
  Country: None (occurrence: None)
  Receive Date: 20120302
  Receipt Date: 20120302
  Transmission Date: 20120608
  Serious: Yes (Disabling)
  Sender: FDA-Public Use
  Company Number: None

PATIENT
  Age: 69 Year
  Sex: Female
  Weight: 73.935 kg

DRUGS (1)
  1. AZOR [Suspect]
     Indication: HYPERTENSION
     Route: 048
     Dates: start: 20111129, end: 20120301

REACTIONS (11)
  - DECREASED APPETITE [None]
  - DIZZINESS [None]
  - INFLUENZA [None]
  - ASTHENIA [None]
  - OEDEMA PERIPHERAL [None]
  - TENSION HEADACHE [None]
  - DYSPNOEA [None]
  - INCORRECT DOSE ADMINISTERED [None]
  - GASTROINTESTINAL DISORDER [None]
  - GAIT DISTURBANCE [None]
  - DIARRHOEA [None]
